FAERS Safety Report 18773581 (Version 1)
Quarter: 2021Q1

REPORT INFORMATION
  Report Type: Spontaneous
  Country: US (occurrence: US)
  Receive Date: 20210121
  Receipt Date: 20210121
  Transmission Date: 20210419
  Serious: Yes (Other)
  Sender: FDA-Public Use
  Company Number: None

PATIENT
  Age: 68 Year
  Sex: Female
  Weight: 63.5 kg

DRUGS (18)
  1. LUMIFY [Suspect]
     Active Substance: BRIMONIDINE TARTRATE
     Indication: EYE PRURITUS
     Dosage: ?          QUANTITY:1 GTT DROP(S);?FREQUENCY: ONCE
     Dates: start: 20200726, end: 20200726
  2. LUMIFY [Suspect]
     Active Substance: BRIMONIDINE TARTRATE
     Indication: OCULAR HYPERAEMIA
     Dosage: ?          QUANTITY:1 GTT DROP(S);?FREQUENCY: ONCE
     Dates: start: 20200726, end: 20200726
  3. IRBESARTAN. [Concomitant]
     Active Substance: IRBESARTAN
  4. COLACE [Concomitant]
     Active Substance: DOCUSATE SODIUM
  5. SIMVASTATIN. [Concomitant]
     Active Substance: SIMVASTATIN
  6. AMITRIPLYLINE [Concomitant]
  7. AZOCRANBERRY PILLS [Concomitant]
  8. MIRALAX [Concomitant]
     Active Substance: POLYETHYLENE GLYCOL 3350
  9. CLARITIN [Concomitant]
     Active Substance: LORATADINE
  10. ESTRADIOL CREAM [Concomitant]
     Active Substance: ESTRADIOL HEMIHYDRATE
  11. FISH OIL [Concomitant]
     Active Substance: FISH OIL
  12. VIT D [Concomitant]
     Active Substance: VITAMIN D NOS
  13. MAGNESIUM [Concomitant]
     Active Substance: MAGNESIUM
  14. IBUPROFEN PRN [Concomitant]
  15. SENECOT [Concomitant]
  16. VITAMIN B12 [Concomitant]
     Active Substance: CYANOCOBALAMIN
  17. CALCIUM LACTATE [Concomitant]
     Active Substance: CALCIUM LACTATE
  18. TYLENOL [Concomitant]
     Active Substance: ACETAMINOPHEN

REACTIONS (2)
  - Scleral discolouration [None]
  - Eye disorder [None]

NARRATIVE: CASE EVENT DATE: 20200726
